FAERS Safety Report 23083722 (Version 3)
Quarter: 2023Q4

REPORT INFORMATION
  Report Type: Spontaneous
  Country: US (occurrence: US)
  Receive Date: 20231019
  Receipt Date: 20231115
  Transmission Date: 20240110
  Serious: No
  Sender: FDA-Public Use
  Company Number: US-SANOFI-01804291

PATIENT
  Age: 72 Year
  Sex: Male

DRUGS (1)
  1. LANTUS [Suspect]
     Active Substance: INSULIN GLARGINE
     Indication: Diabetes mellitus
     Dosage: 32 IU, HS
     Dates: start: 20230501

REACTIONS (1)
  - Injury associated with device [Unknown]

NARRATIVE: CASE EVENT DATE: 20230101
